FAERS Safety Report 6242163-1 (Version None)
Quarter: 2009Q2

REPORT INFORMATION
  Report Type: 
  Country: None (occurrence: None)
  Receive Date: 20090624
  Receipt Date: 20090611
  Transmission Date: 20091009
  Serious: Yes (Hospitalization)
  Sender: FDA-Public Use
  Company Number: GB-RANBAXY-2009RR-24958

PATIENT
  Age: 92 Year
  Sex: Male

DRUGS (10)
  1. AMOXICILLIN AND CLAVULANATE POTASSIUM [Suspect]
     Indication: LOCALISED INFECTION
     Dosage: 625 MG, BID
     Route: 048
     Dates: end: 20090502
  2. ASPIRIN [Concomitant]
  3. CLARITHROMYCIN [Concomitant]
  4. DIPYRIDAMOLE [Concomitant]
  5. FUROSEMIDE [Concomitant]
  6. GLIPIZIDE [Concomitant]
  7. LANSOPRAZOLE [Concomitant]
  8. PERINDOPRIL ERBUMINE [Concomitant]
  9. PREDNISOLONE [Concomitant]
  10. SIMVASTATIN [Concomitant]

REACTIONS (1)
  - LIVER FUNCTION TEST ABNORMAL [None]
